FAERS Safety Report 10377633 (Version 5)
Quarter: 2016Q4

REPORT INFORMATION
  Report Type: Report from Study
  Country: FR (occurrence: FR)
  Receive Date: 20140812
  Receipt Date: 20161110
  Transmission Date: 20170206
  Serious: Yes (Hospitalization)
  Sender: FDA-Public Use
  Company Number: FR-JNJFOC-20140807336

PATIENT
  Age: 51 Year
  Sex: Male
  Weight: 79 kg

DRUGS (10)
  1. REMICADE [Suspect]
     Active Substance: INFLIXIMAB
     Indication: COLITIS ULCERATIVE
     Dosage: EVERY 0, 2, 6 AND THEN 8 WEEKS (MAINTENANCE)
     Route: 042
  2. REMICADE [Suspect]
     Active Substance: INFLIXIMAB
     Indication: COLITIS ULCERATIVE
     Route: 042
     Dates: start: 20090715, end: 20090729
  3. PENTASA [Concomitant]
     Active Substance: MESALAMINE
     Dosage: PAST 06 MONTHS
     Route: 065
  4. SMECTA [Concomitant]
     Active Substance: MONTMORILLONITE
     Dosage: PAST 06 MONTHS
     Route: 065
  5. REMICADE [Suspect]
     Active Substance: INFLIXIMAB
     Indication: COLITIS ULCERATIVE
     Route: 042
     Dates: start: 20090617
  6. 5-ASA [Concomitant]
     Active Substance: MESALAMINE
     Dosage: PAST 06 MONTHS
     Route: 065
  7. QUESTRAN [Concomitant]
     Active Substance: CHOLESTYRAMINE
     Dosage: PAST 06 MONTHS
     Route: 065
  8. IMODIUM [Concomitant]
     Active Substance: LOPERAMIDE HYDROCHLORIDE
     Dosage: PAST 06 MONTHS
     Route: 065
  9. CORTICOSTEROID NOS [Concomitant]
     Active Substance: CORTICOSTEROID NOS
     Dosage: PAST 06 MONTHS
     Route: 065
  10. SULFASALAZINE. [Concomitant]
     Active Substance: SULFASALAZINE
     Dosage: PAST 06 MONTHS
     Route: 065

REACTIONS (1)
  - Asthenia [Recovered/Resolved]

NARRATIVE: CASE EVENT DATE: 20090729
